FAERS Safety Report 5512678-X (Version None)
Quarter: 2007Q4

REPORT INFORMATION
  Report Type: 
  Country: None (occurrence: None)
  Receive Date: 20071112
  Receipt Date: 20071105
  Transmission Date: 20080405
  Serious: Yes (Other)
  Sender: FDA-Public Use
  Company Number: US-BRISTOL-MYERS SQUIBB COMPANY-13969985

PATIENT
  Sex: Male

DRUGS (4)
  1. REYATAZ [Suspect]
  2. LEXIVA [Suspect]
  3. VIREAD [Suspect]
  4. BACTRIM [Suspect]

REACTIONS (4)
  - BLOOD CREATINE PHOSPHOKINASE INCREASED [None]
  - RENAL FAILURE [None]
  - RHABDOMYOLYSIS [None]
  - SKIN HYPERTROPHY [None]
